FAERS Safety Report 8921373 (Version 2)
Quarter: 2012Q4

REPORT INFORMATION
  Report Type: Report from Study
  Country: US (occurrence: US)
  Receive Date: 20121121
  Receipt Date: 20121218
  Transmission Date: 20130627
  Serious: Yes (Other)
  Sender: FDA-Public Use
  Company Number: US-JNJFOC-20121107005

PATIENT
  Age: 48 None
  Sex: Female

DRUGS (5)
  1. SIMPONI [Suspect]
     Indication: RHEUMATOID ARTHRITIS
     Route: 058
     Dates: start: 201201
  2. ARAVA [Concomitant]
     Indication: RHEUMATOID ARTHRITIS
     Route: 048
  3. BYSTOLIC [Concomitant]
     Indication: HYPERTENSION
     Route: 048
  4. EDARBYCLOR [Concomitant]
     Indication: HYPERTENSION
     Route: 048
     Dates: start: 201207
  5. JANUVIA [Concomitant]
     Indication: DIABETES MELLITUS
     Route: 048

REACTIONS (4)
  - Renal failure [Not Recovered/Not Resolved]
  - Hypertension [Unknown]
  - Device malfunction [Unknown]
  - Drug dose omission [Unknown]
